APPROVED DRUG PRODUCT: AMLODIPINE AND OLMESARTAN MEDOXOMIL
Active Ingredient: AMLODIPINE BESYLATE; OLMESARTAN MEDOXOMIL
Strength: EQ 5MG BASE;20MG
Dosage Form/Route: TABLET;ORAL
Application: A207450 | Product #001
Applicant: JUBILANT GENERICS LTD
Approved: May 15, 2017 | RLD: No | RS: No | Type: DISCN